FAERS Safety Report 4625472-9 (Version None)
Quarter: 2005Q2

REPORT INFORMATION
  Report Type: 
  Country: None (occurrence: None)
  Receive Date: 20050401
  Receipt Date: 20050328
  Transmission Date: 20051028
  Serious: Yes (Death)
  Sender: FDA-Public Use
  Company Number: US-BOEHRINGER INGELHEIM PHARMACEUTICALS, INC.-2005-BP-05074RO

PATIENT
  Sex: Male
  Weight: 81.6 kg

DRUGS (3)
  1. METHADONE HCL [Suspect]
     Dates: start: 20040613, end: 20040613
  2. HUMALOG [Concomitant]
     Indication: DIABETES MELLITUS
     Dosage: SLIDING SCALE AT EACH MEAL
     Route: 058
  3. LANTUS [Concomitant]
     Indication: DIABETES MELLITUS
     Route: 058

REACTIONS (6)
  - ACCIDENTAL OVERDOSE [None]
  - DRUG TOXICITY [None]
  - OVERDOSE [None]
  - PNEUMONIA [None]
  - PULMONARY CONGESTION [None]
  - PULMONARY OEDEMA [None]
